FAERS Safety Report 5558788-2 (Version None)
Quarter: 2007Q4

REPORT INFORMATION
  Report Type: 
  Country: None (occurrence: None)
  Receive Date: 20071214
  Receipt Date: 20071204
  Transmission Date: 20080405
  Serious: Yes (Other)
  Sender: FDA-Public Use
  Company Number: US-PFIZER INC-2007103026

PATIENT
  Age: 63 Year
  Sex: Female

DRUGS (19)
  1. LYRICA [Interacting]
  2. REVLIMID [Interacting]
     Dosage: DAILY DOSE:25MG-TEXT:FOR 21 DAYS
     Route: 048
     Dates: start: 20061130, end: 20070218
  3. DEXAMETHASONE TAB [Suspect]
     Indication: MULTIPLE MYELOMA
  4. LANTUS [Suspect]
     Dosage: TEXT:10 UNITS AT BEDTIME
  5. ALBUTEROL [Concomitant]
  6. CALCIUM [Concomitant]
  7. VITAMIN B6 [Concomitant]
  8. FERROUS SULFATE TAB [Concomitant]
  9. ADVAIR DISKUS 100/50 [Concomitant]
  10. ALLOPURINOL [Concomitant]
  11. LEXAPRO [Concomitant]
  12. BACTRIM [Concomitant]
     Dosage: TEXT:MON, WED, FRI
  13. BENICAR [Concomitant]
  14. ZOCOR [Concomitant]
  15. OXYCONTIN [Concomitant]
  16. AMARYL [Concomitant]
  17. COLCHICINE [Concomitant]
     Dosage: TEXT:AS NEEDED
  18. OXYCODONE HCL [Concomitant]
  19. DUONEB [Concomitant]

REACTIONS (10)
  - AMNESIA [None]
  - CONFUSIONAL STATE [None]
  - DRUG INTERACTION [None]
  - HYPERHIDROSIS [None]
  - HYPOGLYCAEMIA [None]
  - MENTAL STATUS CHANGES [None]
  - NERVOUSNESS [None]
  - RENAL FAILURE ACUTE [None]
  - TREMOR [None]
  - VERTIGO [None]
